FAERS Safety Report 7904663-5 (Version None)
Quarter: 2011Q4

REPORT INFORMATION
  Report Type: 
  Country: None (occurrence: None)
  Receive Date: 20111109
  Receipt Date: 20111103
  Transmission Date: 20120403
  Serious: Yes (Other)
  Sender: FDA-Public Use
  Company Number: US-GLAXOSMITHKLINE-A0951870A

PATIENT
  Age: 69 Year
  Sex: Female

DRUGS (4)
  1. VALTREX [Suspect]
     Indication: HERPES ZOSTER
     Dosage: 500MG THREE TIMES PER DAY
     Route: 048
     Dates: start: 20111017
  2. LOPRESSOR [Concomitant]
  3. LANTUS [Concomitant]
  4. JANUVIA [Concomitant]

REACTIONS (3)
  - MENTAL IMPAIRMENT [None]
  - HALLUCINATION [None]
  - ABNORMAL DREAMS [None]
